FAERS Safety Report 7611016-6 (Version None)
Quarter: 2011Q3

REPORT INFORMATION
  Report Type: 
  Country: None (occurrence: None)
  Receive Date: 20110715
  Receipt Date: 20110706
  Transmission Date: 20111222
  Serious: Yes (Disabling)
  Sender: FDA-Public Use
  Company Number: JP-JNJFOC-20110703824

PATIENT
  Age: 37 Year
  Sex: Male
  Weight: 74 kg

DRUGS (10)
  1. MUCOSTA [Concomitant]
     Dosage: START DATE UNKNOWN BUT PRIOR TO INFLIXIMAB
     Route: 048
     Dates: end: 20100901
  2. LOXONIN [Concomitant]
     Indication: ANKYLOSING SPONDYLITIS
     Route: 048
     Dates: start: 20100902
  3. FOLIC ACID [Concomitant]
     Indication: PROPHYLAXIS
     Dosage: START DATE UNKNOWN BUT PRIOR TO INFLIXIMAB
     Route: 048
  4. MUCOSTA [Concomitant]
     Indication: PROPHYLAXIS
     Route: 048
     Dates: start: 20100902
  5. REMICADE [Suspect]
     Route: 042
     Dates: start: 20100616
  6. LOXONIN [Concomitant]
     Dosage: START DATE UNKNOWN BUT PRIOR TO INFLIXIMAB
     Route: 048
     Dates: end: 20100901
  7. REMICADE [Suspect]
     Route: 042
     Dates: start: 20100602
  8. RHEUMATREX [Suspect]
     Indication: ANKYLOSING SPONDYLITIS
     Dosage: START DATE UNKNOWN BUT PRIOR TO INFLIXIMAB
     Route: 048
  9. REMICADE [Suspect]
     Route: 042
     Dates: start: 20100715
  10. REMICADE [Suspect]
     Indication: ANKYLOSING SPONDYLITIS
     Route: 042
     Dates: start: 20100901

REACTIONS (1)
  - HYPOAESTHESIA [None]
